FAERS Safety Report 12654860 (Version 9)
Quarter: 2017Q3

REPORT INFORMATION
  Report Type: Spontaneous
  Country: US (occurrence: US)
  Receive Date: 20160816
  Receipt Date: 20170919
  Transmission Date: 20171127
  Serious: No
  Sender: FDA-Public Use
  Company Number: PHHY2016US110879

PATIENT
  Sex: Female
  Weight: 48.73 kg

DRUGS (3)
  1. ZOFRAN [Suspect]
     Active Substance: ONDANSETRON HYDROCHLORIDE
     Indication: VOMITING IN PREGNANCY
     Dosage: 4 MG, Q8H
     Route: 042
     Dates: start: 20071127, end: 20071128
  2. ONDANSETRON [Suspect]
     Active Substance: ONDANSETRON
     Indication: VOMITING IN PREGNANCY
     Dosage: 04 MG, PRN
     Route: 065
     Dates: start: 20071119, end: 20071222
  3. ZOFRAN [Suspect]
     Active Substance: ONDANSETRON HYDROCHLORIDE
     Indication: VOMITING IN PREGNANCY
     Dosage: UNK
     Route: 048

REACTIONS (2)
  - Maternal exposure during pregnancy [Unknown]
  - Product use in unapproved indication [Unknown]
